FAERS Safety Report 20645505 (Version 3)
Quarter: 2022Q2

REPORT INFORMATION
  Report Type: Spontaneous
  Country: US (occurrence: US)
  Receive Date: 20220328
  Receipt Date: 20220511
  Transmission Date: 20220721
  Serious: Yes (Other)
  Sender: FDA-Public Use
  Company Number: US-BIOMARINAP-US-2022-142266

PATIENT
  Sex: Female

DRUGS (1)
  1. KUVAN [Suspect]
     Active Substance: SAPROPTERIN DIHYDROCHLORIDE
     Indication: Phenylketonuria
     Dosage: 1800 MILLIGRAM, QD
     Route: 048
     Dates: start: 20220226

REACTIONS (5)
  - Seizure [Unknown]
  - Blood pressure increased [Unknown]
  - Fear [Unknown]
  - Anxiety [Unknown]
  - Headache [Not Recovered/Not Resolved]
